FAERS Safety Report 21898636 (Version 1)
Quarter: 2023Q1

REPORT INFORMATION
  Report Type: Other
  Country: CN (occurrence: None)
  Receive Date: 20230123
  Receipt Date: 20230123
  Transmission Date: 20230417
  Serious: Yes (Other)
  Sender: FDA-Public Use
  Company Number: CN-ROCHE-3269537

PATIENT

DRUGS (1)
  1. BEVACIZUMAB [Suspect]
     Active Substance: BEVACIZUMAB
     Indication: Ovarian cancer recurrent
     Dosage: ACCORDING TO THE PATIENT^S BODY WEIGHT, THE DOSE WAS GENERALLY 10-15 MG/KG, THE FIRST INFUSION TIME
     Route: 041

REACTIONS (1)
  - Myelosuppression [Unknown]
